FAERS Safety Report 5177375-1 (Version None)
Quarter: 2006Q4

REPORT INFORMATION
  Report Type: 
  Country: None (occurrence: None)
  Receive Date: 20061218
  Receipt Date: 20061130
  Transmission Date: 20070319
  Serious: Yes (Other)
  Sender: FDA-Public Use
  Company Number: US-ELI_LILLY_AND_COMPANY-US200612000056

PATIENT
  Age: 45 Year
  Sex: Male
  Weight: 89.342 kg

DRUGS (5)
  1. SOMATROPIN [Suspect]
     Indication: HYPOPITUITARISM
     Dosage: 0.3 MG, DAILY (1/D)
     Route: 058
     Dates: start: 20030715, end: 20061106
  2. SYNTHROID [Concomitant]
     Indication: HYPOTHYROIDISM
     Dates: start: 20030404
  3. DIOVAN [Concomitant]
     Indication: HYPERTENSION
     Dates: start: 20030404
  4. ANDROGEL [Concomitant]
     Indication: HYPOGONADISM
     Dates: start: 20030930
  5. DOSTINEX [Concomitant]
     Indication: PROLACTINOMA
     Dates: start: 20050426

REACTIONS (4)
  - ADRENAL MASS [None]
  - GASTRIC CANCER [None]
  - HEPATIC MASS [None]
  - METASTATIC MALIGNANT MELANOMA [None]
